FAERS Safety Report 13662770 (Version 1)
Quarter: 2017Q2

REPORT INFORMATION
  Report Type: Spontaneous
  Country: US (occurrence: US)
  Receive Date: 20170616
  Receipt Date: 20170616
  Transmission Date: 20170830
  Serious: Yes (Hospitalization)
  Sender: FDA-Public Use
  Company Number: None

PATIENT
  Age: 82 Year
  Sex: Female
  Weight: 91 kg

DRUGS (3)
  1. PROTONIX [Concomitant]
     Active Substance: PANTOPRAZOLE SODIUM
  2. ALEVE [Concomitant]
     Active Substance: NAPROXEN SODIUM
  3. OFEV [Suspect]
     Active Substance: NINTEDANIB
     Indication: PULMONARY FIBROSIS
     Route: 048

REACTIONS (2)
  - Haemorrhagic anaemia [None]
  - Duodenal ulcer haemorrhage [None]

NARRATIVE: CASE EVENT DATE: 20170604
